FAERS Safety Report 7801476-X (Version None)
Quarter: 2011Q4

REPORT INFORMATION
  Report Type: 
  Country: None (occurrence: None)
  Receive Date: 20111007
  Receipt Date: 20110926
  Transmission Date: 20120403
  Serious: Yes (Other)
  Sender: FDA-Public Use
  Company Number: US-JNJFOC-20110911535

PATIENT
  Sex: Male
  Weight: 88.45 kg

DRUGS (4)
  1. ZYTIGA [Suspect]
     Indication: BONE NEOPLASM MALIGNANT
     Route: 048
     Dates: start: 20110401, end: 20110901
  2. METOPROLOL TARTRATE [Concomitant]
     Indication: BLOOD PRESSURE
     Route: 048
     Dates: start: 20080101
  3. LIPITOR [Concomitant]
     Indication: CARDIAC DISORDER
     Route: 048
     Dates: start: 20080101
  4. DIOVAN [Concomitant]
     Indication: BLOOD PRESSURE
     Route: 048
     Dates: start: 20080101

REACTIONS (4)
  - ABNORMAL LOSS OF WEIGHT [None]
  - MUSCULAR WEAKNESS [None]
  - GAIT DISTURBANCE [None]
  - DRUG INEFFECTIVE [None]
